FAERS Safety Report 15539134 (Version 2)
Quarter: 2019Q2

REPORT INFORMATION
  Report Type: Spontaneous
  Country: US (occurrence: US)
  Receive Date: 20181022
  Receipt Date: 20190425
  Transmission Date: 20190711
  Serious: No
  Sender: FDA-Public Use
  Company Number: US-GILEAD-2018-0369462

PATIENT
  Age: 55 Year
  Sex: Female

DRUGS (7)
  1. SEREVENT DISKUS [Concomitant]
     Active Substance: SALMETEROL XINAFOATE
  2. VITAMIN B12 [COBAMAMIDE] [Concomitant]
  3. VITAMIN D3 [Concomitant]
     Active Substance: CHOLECALCIFEROL
  4. TUDORZA PRESSAIR [Concomitant]
     Active Substance: ACLIDINIUM BROMIDE
  5. HARVONI [Suspect]
     Active Substance: LEDIPASVIR\SOFOSBUVIR
     Indication: CHRONIC HEPATITIS C
     Dosage: 1 DF, UNK
     Route: 048
     Dates: start: 201809
  6. FLOVENT [Concomitant]
     Active Substance: FLUTICASONE PROPIONATE
  7. VITAMIN E [Concomitant]
     Active Substance: .ALPHA.-TOCOPHEROL

REACTIONS (5)
  - Ankle fracture [Unknown]
  - Fatigue [Recovered/Resolved]
  - Fall [Unknown]
  - Headache [Recovered/Resolved]
  - Foot fracture [Unknown]

NARRATIVE: CASE EVENT DATE: 201809
